FAERS Safety Report 7215147-4 (Version None)
Quarter: 2011Q1

REPORT INFORMATION
  Report Type: 
  Country: None (occurrence: None)
  Receive Date: 20110107
  Receipt Date: 20100913
  Transmission Date: 20110831
  Serious: No
  Sender: FDA-Public Use
  Company Number: A0880857A

PATIENT
  Age: 74 Year
  Sex: Female

DRUGS (4)
  1. COREG [Concomitant]
  2. PREVACID [Concomitant]
  3. PROZAC [Concomitant]
  4. LOVAZA [Suspect]
     Dosage: 2G PER DAY
     Route: 048
     Dates: start: 20091001

REACTIONS (2)
  - PRURITUS [None]
  - INJECTION SITE HAEMORRHAGE [None]
